FAERS Safety Report 10391043 (Version 1)
Quarter: 2014Q3

REPORT INFORMATION
  Report Type: Spontaneous
  Country: GB (occurrence: GB)
  Receive Date: 20140818
  Receipt Date: 20140818
  Transmission Date: 20150326
  Serious: Yes (Hospitalization, Other)
  Sender: FDA-Public Use
  Company Number: GB-ROXANE LABORATORIES, INC.-2014-RO-01236RO

PATIENT
  Age: 42 Year
  Sex: Female
  Weight: 120 kg

DRUGS (1)
  1. LITHIUM CARBONATE. [Suspect]
     Active Substance: LITHIUM CARBONATE
     Indication: PRODUCT USED FOR UNKNOWN INDICATION
     Route: 065

REACTIONS (9)
  - Convulsion [Unknown]
  - Nephrogenic diabetes insipidus [Unknown]
  - Polydipsia [Unknown]
  - Hypernatraemia [Recovered/Resolved]
  - Hypertriglyceridaemia [Unknown]
  - Pancreatitis [Unknown]
  - Abnormal weight gain [Unknown]
  - Hyperglycaemic hyperosmolar nonketotic syndrome [Unknown]
  - Hypotension [Unknown]
